FAERS Safety Report 8342825-6 (Version None)
Quarter: 2012Q2

REPORT INFORMATION
  Report Type: 
  Country: None (occurrence: None)
  Receive Date: 20120503
  Receipt Date: 20111114
  Transmission Date: 20120825
  Serious: Yes (Hospitalization)
  Sender: FDA-Public Use
  Company Number: NL-024299

PATIENT
  Age: 55 Year
  Sex: Male

DRUGS (8)
  1. (CHLORAMBUCIL) [Suspect]
     Indication: PRODUCT USED FOR UNKNOWN INDICATION
     Dosage: 16 MG, UNSPECIFIED INTERVAL
     Dates: start: 20110530, end: 20110630
  2. ETOPOSIDE [Suspect]
     Indication: PRODUCT USED FOR UNKNOWN INDICATION
     Dosage: 200 MG
     Dates: start: 20110530, end: 20110630
  3. FLUCONAZOLE [Concomitant]
  4. OXYCODONE HCL [Concomitant]
  5. BISACODYL [Concomitant]
  6. (RITUXIMAB) [Suspect]
     Indication: PRODUCT USED FOR UNKNOWN INDICATION
     Dosage: 740 MG
     Dates: start: 20110530, end: 20110530
  7. (LOMUSTINE) [Suspect]
     Indication: PRODUCT USED FOR UNKNOWN INDICATION
     Dosage: 160 MG
     Dates: start: 20110530, end: 20110530
  8. PREDNISOLONE [Concomitant]

REACTIONS (1)
  - PNEUMONIA KLEBSIELLA [None]
